FAERS Safety Report 15361189 (Version 1)
Quarter: 2018Q3

REPORT INFORMATION
  Report Type: Spontaneous
  Country: ZA (occurrence: ZA)
  Receive Date: 20180907
  Receipt Date: 20180907
  Transmission Date: 20181010
  Serious: Yes (Other)
  Sender: FDA-Public Use
  Company Number: ZA-009507513-1809ZAF000145

PATIENT
  Age: 56 Year
  Sex: Male

DRUGS (2)
  1. EZETROL 10MG [Suspect]
     Active Substance: EZETIMIBE
     Indication: LOW DENSITY LIPOPROTEIN INCREASED
     Dosage: UNK
  2. ASPAVOR [Suspect]
     Active Substance: ATORVASTATIN

REACTIONS (1)
  - Diverticulitis [Recovered/Resolved]
